FAERS Safety Report 5565528-X (Version None)
Quarter: 2007Q4

REPORT INFORMATION
  Report Type: 
  Country: None (occurrence: None)
  Receive Date: 20071218
  Receipt Date: 20071206
  Transmission Date: 20080405
  Serious: Yes (Other)
  Sender: FDA-Public Use
  Company Number: JP-PFIZER INC-2007103472

PATIENT
  Sex: Female

DRUGS (1)
  1. ALDACTONE [Suspect]
     Dosage: TEXT:QD
     Route: 048

REACTIONS (5)
  - DEMENTIA [None]
  - HAEMORRHOIDS [None]
  - HYPOAESTHESIA [None]
  - INSOMNIA [None]
  - OEDEMA [None]
